FAERS Safety Report 4843668-8 (Version None)
Quarter: 2005Q4

REPORT INFORMATION
  Report Type: 
  Country: None (occurrence: None)
  Receive Date: 20051202
  Receipt Date: 20051121
  Transmission Date: 20060501
  Serious: Yes (Hospitalization, Other)
  Sender: FDA-Public Use
  Company Number: 2005UW17687

PATIENT
  Age: 57 Year
  Sex: Female
  Weight: 119 kg

DRUGS (7)
  1. SEROQUEL [Suspect]
     Indication: BIPOLAR DISORDER
     Route: 048
     Dates: start: 20050401, end: 20050101
  2. SEROQUEL [Suspect]
     Route: 048
     Dates: start: 20050101
  3. WELLBUTRIN [Suspect]
     Indication: BIPOLAR DISORDER
     Route: 048
     Dates: start: 20050401
  4. WELLBUTRIN [Suspect]
     Route: 048
  5. PEG-INTRON [Suspect]
     Indication: HEPATITIS C
     Route: 058
     Dates: start: 20050204, end: 20050309
  6. REBETOL [Suspect]
     Indication: HEPATITIS C
     Route: 048
     Dates: start: 20050204, end: 20050309
  7. DEPAKOTE [Concomitant]
     Indication: BIPOLAR DISORDER
     Route: 048

REACTIONS (9)
  - ALCOHOL PROBLEM [None]
  - ALCOHOLISM [None]
  - AMNESIA [None]
  - BIPOLAR DISORDER [None]
  - CONDITION AGGRAVATED [None]
  - DEPRESSION [None]
  - INTENTIONAL OVERDOSE [None]
  - SUICIDAL IDEATION [None]
  - TEARFULNESS [None]
